FAERS Safety Report 25383438 (Version 1)
Quarter: 2025Q2

REPORT INFORMATION
  Report Type: Spontaneous
  Country: CA (occurrence: CA)
  Receive Date: 20250602
  Receipt Date: 20250602
  Transmission Date: 20250716
  Serious: Yes (Other)
  Sender: ROCHE
  Company Number: CA-002147023-NVSC2025CA085180

PATIENT

DRUGS (1)
  1. XOLAIR [Suspect]
     Active Substance: OMALIZUMAB
     Indication: Product used for unknown indication
     Route: 065

REACTIONS (7)
  - Sepsis [Unknown]
  - Urticaria [Unknown]
  - Pruritus [Unknown]
  - Insomnia [Unknown]
  - Feeding disorder [Unknown]
  - Discomfort [Unknown]
  - Gait disturbance [Unknown]
